FAERS Safety Report 18265389 (Version 1)
Quarter: 2020Q3

REPORT INFORMATION
  Report Type: Other
  Country: US (occurrence: US)
  Receive Date: 20200914
  Receipt Date: 20200914
  Transmission Date: 20201103
  Serious: No
  Sender: FDA-Public Use
  Company Number: US-LEADIANT BIOSCIENCES INC-2020STPI000167

PATIENT
  Age: 43 Year
  Sex: Female

DRUGS (7)
  1. GLEOSTINE [Concomitant]
     Active Substance: LOMUSTINE
  2. MATULANE [Suspect]
     Active Substance: PROCARBAZINE HYDROCHLORIDE
     Indication: BRAIN NEOPLASM MALIGNANT
     Dosage: 3 CAPSULES QD ON DAYS 8?21 OF 42 DAY CYCLE
     Route: 048
     Dates: start: 20191217
  3. SANCUSO [Concomitant]
     Active Substance: GRANISETRON
  4. AMBIEN [Concomitant]
     Active Substance: ZOLPIDEM TARTRATE
  5. KEPPRA [Concomitant]
     Active Substance: LEVETIRACETAM
  6. LEXAPRO [Concomitant]
     Active Substance: ESCITALOPRAM OXALATE
  7. LAMICTAL [Concomitant]
     Active Substance: LAMOTRIGINE

REACTIONS (1)
  - Nausea [Not Recovered/Not Resolved]

NARRATIVE: CASE EVENT DATE: 20200302
